FAERS Safety Report 9770194 (Version 1)
Quarter: 2013Q4

REPORT INFORMATION
  Report Type: Spontaneous
  Country: US (occurrence: US)
  Receive Date: 20131218
  Receipt Date: 20131218
  Transmission Date: 20140711
  Serious: Yes (Other)
  Sender: FDA-Public Use
  Company Number: US-TEVA-450692USA

PATIENT
  Age: 28 Year
  Sex: Female
  Weight: 84.9 kg

DRUGS (4)
  1. PARAGARD 380A [Suspect]
     Indication: CONTRACEPTION
     Route: 015
     Dates: start: 20131210, end: 20131210
  2. BUSPAR [Concomitant]
     Indication: DEPRESSION
  3. TEGRA F [Concomitant]
     Indication: ANAEMIA
     Dosage: 125/1MG
  4. RANITIDINE HCL [Concomitant]
     Indication: DEPRESSION

REACTIONS (1)
  - Device dislocation [Recovered/Resolved]
